FAERS Safety Report 18407246 (Version 1)
Quarter: 2020Q4

REPORT INFORMATION
  Report Type: Spontaneous
  Country: US (occurrence: US)
  Receive Date: 20201021
  Receipt Date: 20201021
  Transmission Date: 20210114
  Serious: Yes (Other)
  Sender: FDA-Public Use
  Company Number: US-GW PHARMA-202010USGW03551

PATIENT

DRUGS (2)
  1. EPIDIOLEX [Suspect]
     Active Substance: CANNABIDIOL
     Indication: EPILEPSY
     Dosage: 250 MILLIGRAM, BID (FIRST SHIPPED ON 27 MAY 2020)
     Dates: start: 2020, end: 2020
  2. EPIDIOLEX [Suspect]
     Active Substance: CANNABIDIOL
     Dosage: 350 MILLIGRAM, BID
     Dates: start: 2020

REACTIONS (2)
  - Weight increased [Unknown]
  - Seizure [Unknown]

NARRATIVE: CASE EVENT DATE: 2020
